FAERS Safety Report 18505137 (Version 1)
Quarter: 2020Q4

REPORT INFORMATION
  Report Type: Other
  Country: CZ (occurrence: CZ)
  Receive Date: 20201116
  Receipt Date: 20201116
  Transmission Date: 20210114
  Serious: Yes (Other)
  Sender: FDA-Public Use
  Company Number: CZ-ROCHE-2712972

PATIENT
  Sex: Female

DRUGS (4)
  1. POLATUZUMAB VEDOTIN. [Suspect]
     Active Substance: POLATUZUMAB VEDOTIN
     Indication: PRODUCT USED FOR UNKNOWN INDICATION
     Dosage: CYCLE 1?CYCLE 2 RECEIVED ON 18/FEB/2020
     Route: 065
     Dates: start: 20200128
  2. RITUXIMAB. [Suspect]
     Active Substance: RITUXIMAB
     Indication: PRODUCT USED FOR UNKNOWN INDICATION
     Dosage: CYCLE 1? CYCLE 2 RECEIVED ON 18/FEB/2020?CYCLE 3 RECEIVED ON 10/MAR/2020
     Route: 065
     Dates: start: 20200128, end: 20200513
  3. BENDAMUSTINE [Suspect]
     Active Substance: BENDAMUSTINE
     Indication: PRODUCT USED FOR UNKNOWN INDICATION
     Dosage: CYCLE 1? CYCLE 2 RECEIVED ON 18/FEB/2020?CYCLE 3 RECEIVED ON 10/MAR/2020
     Route: 065
     Dates: start: 20200128, end: 20200513
  4. POLATUZUMAB VEDOTIN. [Suspect]
     Active Substance: POLATUZUMAB VEDOTIN
     Dosage: CYCLE 3
     Route: 065
     Dates: start: 20200310, end: 20200513

REACTIONS (1)
  - Polyneuropathy [Unknown]
